FAERS Safety Report 6135670-3 (Version None)
Quarter: 2009Q1

REPORT INFORMATION
  Report Type: 
  Country: None (occurrence: None)
  Receive Date: 20090327
  Receipt Date: 20090130
  Transmission Date: 20090719
  Serious: Yes (Hospitalization)
  Sender: FDA-Public Use
  Company Number: US-PFIZER INC-2008082361

PATIENT
  Sex: Female
  Weight: 81 kg

DRUGS (7)
  1. SUNITINIB MALATE [Suspect]
     Indication: BREAST CANCER
     Dosage: 25 MG, 1X/DAY
     Route: 048
     Dates: start: 20080423, end: 20080923
  2. *CAPECITABINE [Suspect]
     Indication: BREAST CANCER
     Dosage: 2300 MG, 2X/DAY, DAY 1-14, EVERY 3 WEEKS
     Route: 048
     Dates: start: 20080304, end: 20080408
  3. INSULIN [Concomitant]
     Indication: DIABETES MELLITUS
     Dosage: 30 IU, 2X/DAY
     Dates: start: 20070522
  4. METOCLOPRAMIDE [Concomitant]
     Indication: NAUSEA
     Dosage: 10 MG, 3X/DAY
     Dates: start: 20070724
  5. METOPROLOL [Concomitant]
     Indication: HYPERTENSION
     Dosage: 50 MG, 1X/DAY
     Dates: start: 20080226
  6. CLONAZEPAM [Concomitant]
     Indication: HYPERTENSION
     Dosage: 0.5 MG, 1X/DAY
     Dates: start: 20080226
  7. DURAGESIC-100 [Concomitant]
     Indication: PAIN
     Dosage: 972 DEGREE
     Dates: start: 20080308

REACTIONS (2)
  - COLITIS [None]
  - SEPSIS [None]
